FAERS Safety Report 16321067 (Version 1)
Quarter: 2019Q2

REPORT INFORMATION
  Report Type: Spontaneous
  Country: JP (occurrence: JP)
  Receive Date: 20190516
  Receipt Date: 20190516
  Transmission Date: 20190711
  Serious: Yes (Other)
  Sender: FDA-Public Use
  Company Number: JP-PFIZER INC-2019204350

PATIENT
  Age: 85 Year
  Sex: Male

DRUGS (6)
  1. EVENITY [Suspect]
     Active Substance: ROMOSOZUMAB-AQQG
     Indication: FEMUR FRACTURE
     Dosage: 210 MG, UNK
     Route: 058
     Dates: start: 20190311
  2. CELECOXIB. [Suspect]
     Active Substance: CELECOXIB
     Indication: PRODUCT USED FOR UNKNOWN INDICATION
     Dosage: 20 MG, 1X/DAY
     Dates: end: 2019
  3. FERROMIA [Concomitant]
     Active Substance: SODIUM FERROUS CITRATE
     Dosage: UNK
     Dates: end: 2019
  4. REBAMIPIDE AMEL [Concomitant]
     Dosage: UNK
     Dates: end: 2019
  5. ONEALFA FUJISAWA [Concomitant]
     Dosage: UNK
     Dates: end: 2019
  6. AMLODIPINE SANDOZ [AMLODIPINE BESILATE] [Concomitant]
     Dosage: UNK
     Dates: end: 2019

REACTIONS (6)
  - Product use in unapproved indication [Unknown]
  - Fall [Unknown]
  - Postoperative delirium [Unknown]
  - Femoral neck fracture [Unknown]
  - Pyrexia [Not Recovered/Not Resolved]
  - Off label use [Unknown]
